FAERS Safety Report 5775057-6 (Version None)
Quarter: 2008Q2

REPORT INFORMATION
  Report Type: 
  Country: None (occurrence: None)
  Receive Date: 20080617
  Receipt Date: 20080617
  Transmission Date: 20081010
  Serious: Yes (Hospitalization, Disabling)
  Sender: FDA-Public Use
  Company Number: None

PATIENT
  Age: 83 Year
  Sex: Female

DRUGS (11)
  1. HEPARIN [Suspect]
     Indication: THROMBOSIS PROPHYLAXIS
     Dosage: 5,000 UNITS Q8H SQ
     Route: 058
     Dates: start: 20080510, end: 20080601
  2. SOTALOL HCL [Concomitant]
  3. GLIPIZIDE [Concomitant]
  4. ASPIRIN [Concomitant]
  5. LOSARTAN POTASSIUM [Concomitant]
  6. AMBIEN [Concomitant]
  7. NEURONTIN [Concomitant]
  8. DIGOXIN [Concomitant]
  9. ATACAND [Concomitant]
  10. FENTANYL TRANSDERMAL SYSTEM [Concomitant]
  11. NEXIUM [Concomitant]

REACTIONS (2)
  - ACTIVATED PARTIAL THROMBOPLASTIN TIME PROLONGED [None]
  - COMPARTMENT SYNDROME [None]
